FAERS Safety Report 8341125-8 (Version None)
Quarter: 2012Q2

REPORT INFORMATION
  Report Type: 
  Country: None (occurrence: None)
  Receive Date: 20120507
  Receipt Date: 20120502
  Transmission Date: 20120825
  Serious: Yes (Other)
  Sender: FDA-Public Use
  Company Number: GR-GLAXOSMITHKLINE-B0799619A

PATIENT
  Age: 60 Year
  Sex: Male

DRUGS (4)
  1. POLYGAM S/D [Concomitant]
  2. CORTICOSTEROIDS [Concomitant]
  3. FLUTICASONE PROPIONATE/SALMETEROL [Suspect]
     Indication: CHRONIC OBSTRUCTIVE PULMONARY DISEASE
     Dosage: 500MCG PER DAY
     Route: 048
     Dates: start: 20120421
  4. SPIRIVA [Concomitant]

REACTIONS (3)
  - RASH [None]
  - VASCULITIS [None]
  - BURNING SENSATION [None]
